FAERS Safety Report 9824438 (Version 2)
Quarter: 2014Q1

REPORT INFORMATION
  Report Type: Spontaneous
  Country: US (occurrence: US)
  Receive Date: 20140116
  Receipt Date: 20140116
  Transmission Date: 20141002
  Serious: No
  Sender: FDA-Public Use
  Company Number: US-GILEAD-2011-0039830

PATIENT
  Sex: Male

DRUGS (8)
  1. LETAIRIS [Suspect]
     Indication: PULMONARY HYPERTENSION
     Route: 048
     Dates: start: 20110519, end: 20110522
  2. ALLOPURINOL [Concomitant]
  3. TRIAMTERENE-HCTZ [Concomitant]
  4. WARFARIN [Concomitant]
  5. ATENOLOL [Concomitant]
  6. ADVAIR [Concomitant]
  7. SPIRIVA [Concomitant]
  8. TAMSULOSIN [Concomitant]

REACTIONS (7)
  - Urinary tract infection [Unknown]
  - Blood potassium decreased [Unknown]
  - Pruritus [Unknown]
  - Nasal congestion [Unknown]
  - Local swelling [Unknown]
  - Abdominal pain [Unknown]
  - Palpitations [Unknown]
